FAERS Safety Report 5952677-7 (Version None)
Quarter: 2008Q4

REPORT INFORMATION
  Report Type: 
  Country: None (occurrence: None)
  Receive Date: 20081031
  Receipt Date: 20080828
  Transmission Date: 20090506
  Serious: No
  Sender: FDA-Public Use
  Company Number: 2008-US-000322

PATIENT
  Age: 15 Year
  Sex: Male
  Weight: 45.4 kg

DRUGS (2)
  1. INCRELEX [Suspect]
     Indication: GROWTH HORMONE DEFICIENCY
     Dosage: 0.4 ML, BID; 0.52 ML, BID
     Dates: start: 20080101, end: 20080401
  2. INCRELEX [Suspect]
     Indication: GROWTH HORMONE DEFICIENCY
     Dosage: 0.4 ML, BID; 0.52 ML, BID
     Dates: start: 20080401

REACTIONS (2)
  - HAIR TEXTURE ABNORMAL [None]
  - NASAL TURBINATE HYPERTROPHY [None]
